FAERS Safety Report 9107916 (Version 2)
Quarter: 2014Q2

REPORT INFORMATION
  Report Type: Spontaneous
  Country: US (occurrence: US)
  Receive Date: 20130221
  Receipt Date: 20140528
  Transmission Date: 20141212
  Serious: No
  Sender: FDA-Public Use
  Company Number: US-PFIZER INC-2013064336

PATIENT
  Age: 49 Year
  Sex: Female

DRUGS (7)
  1. ZOLOFT [Suspect]
     Dosage: UNK
  2. SEPTRA [Suspect]
     Dosage: UNK
  3. PAXIL [Suspect]
     Dosage: UNK
  4. HYDROCODONE [Suspect]
     Dosage: UNK
  5. AMOXICILLIN [Suspect]
     Dosage: UNK
  6. HALDOL [Suspect]
     Dosage: UNK
  7. ROZEREM [Suspect]
     Dosage: 8 MG, 1X/DAY AT BEDTIME

REACTIONS (1)
  - Drug hypersensitivity [Unknown]
